FAERS Safety Report 9315517 (Version 1)
Quarter: 2013Q2

REPORT INFORMATION
  Report Type: Report from Study
  Country: BR (occurrence: BR)
  Receive Date: 20130529
  Receipt Date: 20130529
  Transmission Date: 20140414
  Serious: Yes (Hospitalization)
  Sender: FDA-Public Use
  Company Number: BR-US-EMD SERONO, INC.-7213814

PATIENT
  Age: 31 Year
  Sex: Male

DRUGS (4)
  1. REBIF [Suspect]
     Indication: RELAPSING-REMITTING MULTIPLE SCLEROSIS
     Dates: start: 20130101
  2. MANTIDAM [Concomitant]
     Indication: PRODUCT USED FOR UNKNOWN INDICATION
  3. RETEMIC [Concomitant]
     Indication: PRODUCT USED FOR UNKNOWN INDICATION
  4. CARBAMAZEPINE [Concomitant]
     Indication: PRODUCT USED FOR UNKNOWN INDICATION

REACTIONS (8)
  - Food poisoning [Recovering/Resolving]
  - Urinary incontinence [Unknown]
  - Gait disturbance [Unknown]
  - Muscular weakness [Unknown]
  - Malaise [Unknown]
  - Fungal skin infection [Not Recovered/Not Resolved]
  - Drug hypersensitivity [Unknown]
  - Injection site erythema [Unknown]
